FAERS Safety Report 21187896 (Version 2)
Quarter: 2022Q3

REPORT INFORMATION
  Report Type: Spontaneous
  Country: CH (occurrence: CH)
  Receive Date: 20220809
  Receipt Date: 20220810
  Transmission Date: 20221027
  Serious: Yes (Other)
  Sender: FDA-Public Use
  Company Number: None

PATIENT
  Age: 63 Year
  Sex: Female
  Weight: 120.3 kg

DRUGS (3)
  1. SAXENDA [Suspect]
     Active Substance: LIRAGLUTIDE
     Dosage: 2.4 MG, QD
     Route: 058
  2. SAXENDA [Suspect]
     Active Substance: LIRAGLUTIDE
     Indication: Obesity
     Dosage: 0.6 MG, QD
     Route: 058
     Dates: start: 20211116
  3. SAXENDA [Suspect]
     Active Substance: LIRAGLUTIDE
     Dosage: 3 MG, QD
     Route: 058
     Dates: end: 202202

REACTIONS (3)
  - Rash [Recovered/Resolved]
  - Weight loss poor [Unknown]
  - Product use issue [Unknown]

NARRATIVE: CASE EVENT DATE: 20211216
